FAERS Safety Report 25628013 (Version 1)
Quarter: 2025Q3

REPORT INFORMATION
  Report Type: Spontaneous
  Country: CN (occurrence: CN)
  Receive Date: 20250731
  Receipt Date: 20250731
  Transmission Date: 20251020
  Serious: Yes (Other)
  Sender: DAIICHI
  Company Number: CN-DSJP-DS-2025-155436-CN

PATIENT
  Sex: Female
  Weight: 55 kg

DRUGS (5)
  1. TRASTUZUMAB DERUXTECAN [Suspect]
     Active Substance: TRASTUZUMAB DERUXTECAN
     Indication: Neoplasm malignant
     Dosage: 300 MG, QD
     Route: 041
     Dates: start: 20250704, end: 20250707
  2. TORIPALIMAB [Suspect]
     Active Substance: TORIPALIMAB
     Indication: Neoplasm malignant
     Dosage: 240 MG, QD
     Route: 041
     Dates: start: 20250704, end: 20250707
  3. XELODA [Suspect]
     Active Substance: CAPECITABINE
     Indication: Chemotherapy
     Dosage: 1.5 G, QD
     Route: 048
     Dates: start: 20250613, end: 20250613
  4. SODIUM CHLORIDE [Concomitant]
     Active Substance: SODIUM CHLORIDE
     Indication: Product used for unknown indication
     Route: 042
  5. DEXTROSE [Concomitant]
     Active Substance: DEXTROSE MONOHYDRATE
     Indication: Product used for unknown indication
     Route: 042

REACTIONS (2)
  - Myelosuppression [Unknown]
  - White blood cell count decreased [Recovering/Resolving]
